FAERS Safety Report 15514750 (Version 3)
Quarter: 2020Q3

REPORT INFORMATION
  Report Type: Report from Study
  Country: IT (occurrence: IT)
  Receive Date: 20181016
  Receipt Date: 20181112
  Transmission Date: 20201104
  Serious: Yes (Other)
  Sender: FDA-Public Use
  Company Number: PHHY2018IT125191

PATIENT
  Sex: Female

DRUGS (1)
  1. GILENYA [Suspect]
     Active Substance: FINGOLIMOD HYDROCHLORIDE
     Indication: PRODUCT USED FOR UNKNOWN INDICATION
     Dosage: UNK
     Route: 065
     Dates: start: 201602

REACTIONS (7)
  - Disease recurrence [Unknown]
  - Fatigue [Unknown]
  - Lymphopenia [Unknown]
  - Paraparesis [Unknown]
  - Gait disturbance [Unknown]
  - Bradycardia [Unknown]
  - Multiple sclerosis relapse [Unknown]

NARRATIVE: CASE EVENT DATE: 201602
